FAERS Safety Report 19126772 (Version 1)
Quarter: 2021Q2

REPORT INFORMATION
  Report Type: Spontaneous
  Country: US (occurrence: US)
  Receive Date: 20210413
  Receipt Date: 20210413
  Transmission Date: 20210717
  Serious: Yes (Hospitalization)
  Sender: FDA-Public Use
  Company Number: None

PATIENT
  Sex: Male
  Weight: 85 kg

DRUGS (4)
  1. METHOTREXATE. [Concomitant]
     Active Substance: METHOTREXATE
  2. PREDNISOLONE. [Concomitant]
     Active Substance: PREDNISOLONE
  3. MERCAPTOPURINE. [Suspect]
     Active Substance: MERCAPTOPURINE
  4. VINCRISTINE SULFATE. [Concomitant]
     Active Substance: VINCRISTINE SULFATE

REACTIONS (2)
  - COVID-19 [None]
  - Hypoxia [None]

NARRATIVE: CASE EVENT DATE: 20210326
